FAERS Safety Report 4420898-0 (Version None)
Quarter: 2004Q3

REPORT INFORMATION
  Report Type: 
  Country: None (occurrence: None)
  Receive Date: 20040809
  Receipt Date: 20040803
  Transmission Date: 20050211
  Serious: Yes (Other)
  Sender: FDA-Public Use
  Company Number: US-ROCHE-376749

PATIENT
  Sex: Male

DRUGS (2)
  1. VALIUM [Suspect]
     Indication: DRUG USE FOR UNKNOWN INDICATION
     Route: 048
  2. ENDOCET [Interacting]
     Indication: BACK PAIN
     Route: 065

REACTIONS (2)
  - DELUSION [None]
  - DRUG INTERACTION [None]
